FAERS Safety Report 4292809-2 (Version None)
Quarter: 2004Q1

REPORT INFORMATION
  Report Type: 
  Country: None (occurrence: None)
  Receive Date: 20040210
  Receipt Date: 20040129
  Transmission Date: 20041129
  Serious: Yes (Death, Hospitalization)
  Sender: FDA-Public Use
  Company Number: ES-JNJFOC-20040200035

PATIENT
  Age: 52 Year
  Sex: Male

DRUGS (2)
  1. REMICADE [Suspect]
     Indication: ANKYLOSING SPONDYLITIS
     Dosage: 5 MG/KG, INTRAVENOUS
     Route: 042
     Dates: start: 20030501
  2. NSAIDS (NSAIDS) [Concomitant]

REACTIONS (7)
  - ASTHENIA [None]
  - BRONCHOPULMONARY ASPERGILLOSIS [None]
  - GENERAL PHYSICAL HEALTH DETERIORATION [None]
  - NIGHT SWEATS [None]
  - PANCYTOPENIA [None]
  - PYREXIA [None]
  - WEIGHT DECREASED [None]
